FAERS Safety Report 15632371 (Version 1)
Quarter: 2018Q4

REPORT INFORMATION
  Report Type: Spontaneous
  Country: US (occurrence: US)
  Receive Date: 20181119
  Receipt Date: 20181119
  Transmission Date: 20190205
  Serious: No
  Sender: FDA-Public Use
  Company Number: US-ASCENT PHARMACEUTICALS, INC.-2059006

PATIENT
  Age: 86 Year
  Sex: Male
  Weight: 72.73 kg

DRUGS (1)
  1. DUTASTERIDE. [Suspect]
     Active Substance: DUTASTERIDE
     Route: 048

REACTIONS (2)
  - Headache [Unknown]
  - Migraine [Unknown]
